FAERS Safety Report 6335147-6 (Version None)
Quarter: 2009Q3

REPORT INFORMATION
  Report Type: 
  Country: None (occurrence: None)
  Receive Date: 20090826
  Receipt Date: 20090819
  Transmission Date: 20100115
  Serious: Yes (Other)
  Sender: FDA-Public Use
  Company Number: 2009SP021226

PATIENT
  Sex: Male

DRUGS (1)
  1. TEMODAL [Suspect]
     Indication: GLIOBLASTOMA
     Dosage: 270 MG; 1060 MG;
     Dates: start: 20090818, end: 20090818

REACTIONS (2)
  - ACCIDENTAL OVERDOSE [None]
  - NEPHROLITHIASIS [None]
